FAERS Safety Report 9822031 (Version 1)
Quarter: 2014Q1

REPORT INFORMATION
  Report Type: Spontaneous
  Country: DE (occurrence: DE)
  Receive Date: 20140116
  Receipt Date: 20140116
  Transmission Date: 20141002
  Serious: Yes (Hospitalization, Other)
  Sender: FDA-Public Use
  Company Number: GXKR2014DE000506

PATIENT
  Age: 72 Year
  Sex: Male

DRUGS (3)
  1. ATORVASTATIN HEXAL [Suspect]
     Dosage: 20 MG, QD
     Route: 048
     Dates: start: 201308, end: 201310
  2. TOREM [Suspect]
     Dosage: UNK UKN, UNK
     Route: 065
  3. INSPRA [Interacting]
     Dosage: 25 MG, UNK
     Route: 065

REACTIONS (3)
  - Myocardial infarction [Unknown]
  - Cardiac failure [Unknown]
  - Gamma-glutamyltransferase increased [Recovering/Resolving]
